FAERS Safety Report 8221223-X (Version None)
Quarter: 2012Q1

REPORT INFORMATION
  Report Type: 
  Country: None (occurrence: None)
  Receive Date: 20120320
  Receipt Date: 20120309
  Transmission Date: 20120608
  Serious: Yes (Hospitalization, Other)
  Sender: FDA-Public Use
  Company Number: PHHY2011FR109830

PATIENT
  Sex: Female

DRUGS (10)
  1. ESIDRIX [Suspect]
     Indication: HYPERTENSION
     Dosage: 0.5 DF, QD
     Dates: end: 20111117
  2. ACETAMINOPHEN [Concomitant]
     Dosage: 1000 MG, QD
  3. COZAAR [Interacting]
     Indication: HYPERTENSION
     Dosage: 50 MG, QD
     Dates: end: 20111117
  4. ATHYMIL [Concomitant]
     Dosage: 30 MG, QD
  5. ATORVASTATIN [Concomitant]
     Indication: HYPERCHOLESTEROLAEMIA
     Dosage: 20 MG, QD
  6. CORDARONE [Concomitant]
     Dosage: 200 MG, QD
  7. ACETAMINOPHEN AND TRAMADOL HCL [Concomitant]
     Indication: PAIN
     Dates: start: 20111114
  8. VITAMIN D [Concomitant]
     Dosage: 100000 IU, MONTHLY
  9. LORAZEPAM [Concomitant]
     Dosage: 1 MG, QD
  10. PREVISCAN [Concomitant]
     Dosage: 10 MG, QD

REACTIONS (10)
  - VERTIGO [None]
  - CEREBROVASCULAR ACCIDENT [None]
  - CONFUSIONAL STATE [None]
  - RENAL FAILURE ACUTE [None]
  - SPEECH DISORDER [None]
  - DEHYDRATION [None]
  - CARDIAC FAILURE [None]
  - DRUG INTERACTION [None]
  - HEART RATE INCREASED [None]
  - BLOOD PRESSURE DECREASED [None]
